FAERS Safety Report 14168250 (Version 2)
Quarter: 2018Q2

REPORT INFORMATION
  Report Type: Spontaneous
  Country: US (occurrence: US)
  Receive Date: 20171107
  Receipt Date: 20180515
  Transmission Date: 20180711
  Serious: No
  Sender: FDA-Public Use
  Company Number: US-SA-2017SA106466

PATIENT
  Age: 70 Year
  Sex: Male

DRUGS (6)
  1. VALIUM [Concomitant]
     Active Substance: DIAZEPAM
  2. PLAVIX [Concomitant]
     Active Substance: CLOPIDOGREL BISULFATE
  3. HUMALOG [Concomitant]
     Active Substance: INSULIN LISPRO
  4. TOUJEO [Suspect]
     Active Substance: INSULIN GLARGINE
     Indication: TYPE 2 DIABETES MELLITUS
     Dosage: 50-60UNITS
     Route: 051
  5. SOLOSTAR [Concomitant]
     Active Substance: DEVICE
  6. LANTUS [Concomitant]
     Active Substance: INSULIN GLARGINE
     Route: 065

REACTIONS (2)
  - Product use issue [Unknown]
  - Blood glucose increased [Unknown]
